FAERS Safety Report 17081088 (Version 4)
Quarter: 2020Q1

REPORT INFORMATION
  Report Type: Spontaneous
  Country: FR (occurrence: FR)
  Receive Date: 20191127
  Receipt Date: 20200225
  Transmission Date: 20200409
  Serious: Yes (Hospitalization, Other)
  Sender: FDA-Public Use
  Company Number: FR-ASTRAZENECA-2019SF65641

PATIENT
  Age: 60 Year
  Sex: Male

DRUGS (12)
  1. KARDEGIC [Suspect]
     Active Substance: ASPIRIN DL-LYSINE
     Indication: MYOCARDIAL INFARCTION
     Dosage: 1 DOSING UNIT AT LUNCH
     Route: 048
     Dates: start: 2019
  2. CARTEOL LP [Suspect]
     Active Substance: CARTEOLOL HYDROCHLORIDE
     Indication: GLAUCOMA
     Dosage: STARTED APPROXIMATELY 5 YEARS AGO (REPORTED AS SEVERAL YEARS); 1 DROP PER DAY IN EACH EYE; 2 GTT ...
     Route: 047
     Dates: end: 2019
  3. COLCHICINE. [Suspect]
     Active Substance: COLCHICINE
     Indication: MYOCARDIAL INFARCTION
     Dosage: 1 TABLET IN THE EVENING
     Route: 048
     Dates: start: 2019
  4. CARTEOL LP [Suspect]
     Active Substance: CARTEOLOL HYDROCHLORIDE
     Indication: GLAUCOMA
     Route: 047
     Dates: start: 2019, end: 20191120
  5. CARTEOL LP [Suspect]
     Active Substance: CARTEOLOL HYDROCHLORIDE
     Indication: GLAUCOMA
     Route: 047
     Dates: start: 2019
  6. ATORVASTATIN [Suspect]
     Active Substance: ATORVASTATIN
     Indication: MYOCARDIAL INFARCTION
     Route: 048
     Dates: start: 2019
  7. FUROSEMIDE. [Suspect]
     Active Substance: FUROSEMIDE
     Indication: MYOCARDIAL INFARCTION
     Dosage: 40 MG; 1 DOSING UNIT IN THE MORNING
     Route: 048
     Dates: start: 2019
  8. BRILIQUE [Suspect]
     Active Substance: TICAGRELOR
     Indication: MYOCARDIAL INFARCTION
     Route: 048
     Dates: start: 2019, end: 201912
  9. BISOPROLOL [Suspect]
     Active Substance: BISOPROLOL
     Indication: MYOCARDIAL INFARCTION
     Route: 048
     Dates: start: 2019, end: 2019
  10. BISOPROLOL [Suspect]
     Active Substance: BISOPROLOL
     Indication: CARDIAC FAILURE
     Route: 048
     Dates: start: 2019, end: 2019
  11. TAREG [Suspect]
     Active Substance: VALSARTAN
     Indication: MYOCARDIAL INFARCTION
     Dosage: 1 TABLET IN THE EVENING
     Route: 048
     Dates: start: 2019
  12. EPLERENONE. [Suspect]
     Active Substance: EPLERENONE
     Indication: MYOCARDIAL INFARCTION
     Dosage: 25 MG; 1 DOSING UNIT AT LUNCH
     Route: 048
     Dates: start: 2019

REACTIONS (9)
  - Myocardial infarction [Unknown]
  - Cataract [Recovering/Resolving]
  - Contraindicated product administered [Unknown]
  - Labelled drug-drug interaction medication error [Unknown]
  - Vertigo [Recovered/Resolved]
  - Cardiac failure [Unknown]
  - Hypotension [Unknown]
  - Weight decreased [Recovered/Resolved]
  - Visual impairment [Not Recovered/Not Resolved]

NARRATIVE: CASE EVENT DATE: 2019
